FAERS Safety Report 5367763-2 (Version None)
Quarter: 2007Q2

REPORT INFORMATION
  Report Type: 
  Country: None (occurrence: None)
  Receive Date: 20070622
  Receipt Date: 20070502
  Transmission Date: 20071010
  Serious: Yes (Other)
  Sender: FDA-Public Use
  Company Number: US-SHR-US-2007-015546

PATIENT
  Age: 38 Year
  Sex: Female

DRUGS (1)
  1. MIRENA [Suspect]
     Indication: MENORRHAGIA
     Dosage: 20 A?G/DAY, CONT
     Route: 015
     Dates: start: 20061227, end: 20070228

REACTIONS (5)
  - ANAEMIA [None]
  - ASTHENIA [None]
  - DIZZINESS [None]
  - DYSMENORRHOEA [None]
  - HYSTERECTOMY [None]
